FAERS Safety Report 23861673 (Version 1)
Quarter: 2024Q2

REPORT INFORMATION
  Report Type: Report from Study
  Country: DE (occurrence: DE)
  Receive Date: 20240516
  Receipt Date: 20240516
  Transmission Date: 20240716
  Serious: Yes (Hospitalization)
  Sender: FDA-Public Use
  Company Number: DE-AMGEN-DEUSL2023171416

PATIENT
  Age: 41 Year
  Sex: Female

DRUGS (4)
  1. VEDOLIZUMAB [Suspect]
     Active Substance: VEDOLIZUMAB
     Indication: Product used for unknown indication
     Dosage: UNK
     Route: 065
  2. ADALIMUMAB [Suspect]
     Active Substance: ADALIMUMAB\ISOPROPYL ALCOHOL
     Indication: Rheumatoid arthritis
     Dosage: EVERY 10 DAYS
     Route: 065
  3. ADALIMUMAB [Suspect]
     Active Substance: ADALIMUMAB\ISOPROPYL ALCOHOL
     Indication: Ankylosing spondylitis
     Dosage: UNK, Q2WEEKS
     Route: 065
     Dates: start: 201910
  4. ADALIMUMAB [Suspect]
     Active Substance: ADALIMUMAB\ISOPROPYL ALCOHOL
     Dosage: UNK, Q2WEEKS
     Route: 065

REACTIONS (9)
  - Unevaluable event [Unknown]
  - Infection [Unknown]
  - Wrong product administered [Unknown]
  - Off label use [Unknown]
  - Dizziness [Recovered/Resolved]
  - Sinusitis [Not Recovered/Not Resolved]
  - Nausea [Recovered/Resolved]
  - Pain in extremity [Unknown]
  - Arthralgia [Unknown]

NARRATIVE: CASE EVENT DATE: 20231201
